FAERS Safety Report 13078339 (Version 2)
Quarter: 2017Q1

REPORT INFORMATION
  Report Type: Spontaneous
  Country: US (occurrence: US)
  Receive Date: 20170102
  Receipt Date: 20170117
  Transmission Date: 20170428
  Serious: Yes (Death, Other)
  Sender: FDA-Public Use
  Company Number: US-009507513-1612USA014490

PATIENT
  Age: 67 Year
  Sex: Male

DRUGS (1)
  1. KEYTRUDA [Suspect]
     Active Substance: PEMBROLIZUMAB
     Indication: GASTROOESOPHAGEAL CANCER
     Dosage: 124 MG, Q3W
     Route: 042
     Dates: start: 20161006, end: 20161117

REACTIONS (6)
  - Product use issue [Unknown]
  - Malignant neoplasm progression [Fatal]
  - Urinary tract infection [Fatal]
  - Septic shock [Fatal]
  - Hypotension [Fatal]
  - Blood lactic acid increased [Fatal]

NARRATIVE: CASE EVENT DATE: 20161006
